FAERS Safety Report 21849940 (Version 2)
Quarter: 2023Q1

REPORT INFORMATION
  Report Type: Spontaneous
  Country: GB (occurrence: GB)
  Receive Date: 20230111
  Receipt Date: 20230113
  Transmission Date: 20230418
  Serious: Yes (Death, Life-Threatening, Hospitalization)
  Sender: FDA-Public Use
  Company Number: GB-MHRA-MED-202212311732025540-HFJDW

PATIENT
  Age: 59 Year
  Sex: Male
  Weight: 84 kg

DRUGS (5)
  1. LAMOTRIGINE [Suspect]
     Active Substance: LAMOTRIGINE
     Indication: Seizure prophylaxis
     Dosage: 1 DOSAGE FORMS DAILY;
     Route: 065
     Dates: start: 20220626, end: 20220809
  2. FELODIPINE [Concomitant]
     Active Substance: FELODIPINE
     Indication: Product used for unknown indication
  3. RAMIPRIL [Concomitant]
     Active Substance: RAMIPRIL
     Indication: Hypertension
  4. WARFARIN [Concomitant]
     Active Substance: WARFARIN
     Indication: Adverse drug reaction
  5. WARFARIN [Concomitant]
     Active Substance: WARFARIN
     Indication: Aortic valve replacement

REACTIONS (3)
  - Palpitations [Fatal]
  - Seizure [Unknown]
  - Cardiac arrest [Not Recovered/Not Resolved]
